FAERS Safety Report 21738940 (Version 1)
Quarter: 2022Q4

REPORT INFORMATION
  Report Type: Spontaneous
  Country: US (occurrence: US)
  Receive Date: 20221216
  Receipt Date: 20221216
  Transmission Date: 20230113
  Serious: Yes (Other)
  Sender: FDA-Public Use
  Company Number: US-SA-SAC20221213000960

PATIENT
  Sex: Female

DRUGS (10)
  1. AUBAGIO [Suspect]
     Active Substance: TERIFLUNOMIDE
     Indication: Multiple sclerosis
     Dosage: 1 DF, QD
     Route: 048
     Dates: start: 2015
  2. BUSPIRONE HCL [Concomitant]
     Active Substance: BUSPIRONE HYDROCHLORIDE
  3. GABAPENTIN [Concomitant]
     Active Substance: GABAPENTIN
  4. OXYBUTYNIN CHLORIDE [Concomitant]
     Active Substance: OXYBUTYNIN CHLORIDE
  5. NITROFURANTOIN [Concomitant]
     Active Substance: NITROFURANTOIN
  6. CALCIUM +D [CALCIUM;ERGOCALCIFEROL] [Concomitant]
  7. ATORVASTATIN CALCIUM [Concomitant]
     Active Substance: ATORVASTATIN CALCIUM
  8. VITAMIN B12 [Concomitant]
     Active Substance: CYANOCOBALAMIN
  9. VITAMIN C [Concomitant]
     Active Substance: ASCORBIC ACID
  10. MODAFINIL [Concomitant]
     Active Substance: MODAFINIL

REACTIONS (2)
  - Neuropathy peripheral [Unknown]
  - Hypoaesthesia [Unknown]
